FAERS Safety Report 15704465 (Version 2)
Quarter: 2019Q2

REPORT INFORMATION
  Report Type: Spontaneous
  Country: US (occurrence: US)
  Receive Date: 20181210
  Receipt Date: 20190620
  Transmission Date: 20190711
  Serious: No
  Sender: FDA-Public Use
  Company Number: US-MYLANLABS-2018M1087759

PATIENT
  Sex: Female
  Weight: 82 kg

DRUGS (1)
  1. ESTRADIOL TRANSDERMAL SYSTEM [Suspect]
     Active Substance: ESTRADIOL
     Indication: PRODUCT USED FOR UNKNOWN INDICATION
     Dosage: 0.025 MILLIGRAM, QW
     Route: 062

REACTIONS (4)
  - Adverse event [Not Recovered/Not Resolved]
  - Product adhesion issue [Unknown]
  - Weight increased [Not Recovered/Not Resolved]
  - Hyperhidrosis [Recovered/Resolved]
